FAERS Safety Report 17558441 (Version 1)
Quarter: 2020Q1

REPORT INFORMATION
  Report Type: Other
  Country: JP (occurrence: JP)
  Receive Date: 20200318
  Receipt Date: 20200318
  Transmission Date: 20200409
  Serious: Yes (Hospitalization, Other)
  Sender: FDA-Public Use
  Company Number: JP-ALLIED PHARMA-000006

PATIENT
  Age: 50 Year
  Sex: Male

DRUGS (7)
  1. SELEGILINE [Suspect]
     Active Substance: SELEGILINE
     Indication: DEPRESSION
     Dates: start: 200505
  2. TRAZODONE [Suspect]
     Active Substance: TRAZODONE HYDROCHLORIDE
     Indication: PRODUCT USED FOR UNKNOWN INDICATION
  3. CARBAMAZEPINE. [Suspect]
     Active Substance: CARBAMAZEPINE
     Indication: PRODUCT USED FOR UNKNOWN INDICATION
     Dates: start: 201011
  4. SELEGILINE [Suspect]
     Active Substance: SELEGILINE
     Indication: PRODUCT USED FOR UNKNOWN INDICATION
     Dates: start: 201011
  5. TRAZODONE [Suspect]
     Active Substance: TRAZODONE HYDROCHLORIDE
     Indication: PRODUCT USED FOR UNKNOWN INDICATION
     Dates: start: 201011
  6. NITRAZEPAM [Suspect]
     Active Substance: NITRAZEPAM
     Indication: PRODUCT USED FOR UNKNOWN INDICATION
     Dates: start: 201011
  7. SODIUM VALPROATE [Suspect]
     Active Substance: VALPROATE SODIUM
     Indication: PRODUCT USED FOR UNKNOWN INDICATION
     Dosage: SUSTAINED PREPARATION
     Dates: start: 201011

REACTIONS (7)
  - Coma [Recovered/Resolved]
  - Hypertension [Unknown]
  - Suicide attempt [Unknown]
  - Pneumonia aspiration [Recovered/Resolved]
  - Seizure [Recovered/Resolved]
  - Hallucination, visual [Recovered/Resolved]
  - Intentional overdose [Unknown]
